FAERS Safety Report 6021887-5 (Version None)
Quarter: 2008Q4

REPORT INFORMATION
  Report Type: 
  Country: None (occurrence: None)
  Receive Date: 20081229
  Receipt Date: 20081223
  Transmission Date: 20090506
  Serious: Yes (Hospitalization)
  Sender: FDA-Public Use
  Company Number: US-ASTRAZENECA-2008UW28705

PATIENT
  Age: 44 Year
  Sex: Female
  Weight: 95.7 kg

DRUGS (4)
  1. TOPROL-XL [Suspect]
     Route: 048
     Dates: start: 20080501
  2. NEURONTIN [Concomitant]
  3. DARVOCET [Concomitant]
  4. HUMULIN 70/30 [Concomitant]

REACTIONS (2)
  - BLOOD PRESSURE INCREASED [None]
  - CHEST DISCOMFORT [None]
